FAERS Safety Report 18675729 (Version 1)
Quarter: 2020Q4

REPORT INFORMATION
  Report Type: Spontaneous
  Country: US (occurrence: US)
  Receive Date: 20201229
  Receipt Date: 20201229
  Transmission Date: 20210114
  Serious: Yes (Other)
  Sender: FDA-Public Use
  Company Number: US-JNJFOC-20201248183

PATIENT
  Age: 59 Year
  Sex: Female

DRUGS (4)
  1. APREMILAST [Concomitant]
     Active Substance: APREMILAST
     Indication: PSORIASIS
  2. TREMFYA [Suspect]
     Active Substance: GUSELKUMAB
  3. TREMFYA [Suspect]
     Active Substance: GUSELKUMAB
     Indication: PSORIASIS
     Route: 065
     Dates: start: 202008
  4. TREMFYA [Suspect]
     Active Substance: GUSELKUMAB

REACTIONS (3)
  - Off label use [Unknown]
  - Product use in unapproved indication [Unknown]
  - Dermatitis psoriasiform [Not Recovered/Not Resolved]

NARRATIVE: CASE EVENT DATE: 20201201
